FAERS Safety Report 5025532-7 (Version None)
Quarter: 2006Q2

REPORT INFORMATION
  Report Type: 
  Country: None (occurrence: None)
  Receive Date: 20060608
  Receipt Date: 20020925
  Transmission Date: 20061013
  Serious: No
  Sender: FDA-Public Use
  Company Number: 2002-09-1365

PATIENT
  Age: 65 Year
  Sex: Male

DRUGS (3)
  1. ETHYOL [Suspect]
     Indication: NEOPLASM MALIGNANT
     Dosage: SUBCUTANEOUS
     Route: 058
     Dates: end: 20020701
  2. MYCOSTATIN [Concomitant]
  3. MENADERM [Concomitant]

REACTIONS (3)
  - INJECTION SITE ERYTHEMA [None]
  - INJECTION SITE INDURATION [None]
  - INJECTION SITE PRURITUS [None]
